FAERS Safety Report 25462187 (Version 1)
Quarter: 2025Q2

REPORT INFORMATION
  Report Type: Spontaneous
  Country: US (occurrence: None)
  Receive Date: 20250620
  Receipt Date: 20250620
  Transmission Date: 20250717
  Serious: Yes (Hospitalization)
  Sender: FDA-CTU
  Company Number: None

PATIENT
  Age: 17 Year
  Sex: Male
  Weight: 117 kg

DRUGS (1)
  1. TESOFENSINE [Suspect]
     Active Substance: TESOFENSINE
     Indication: Obesity
     Dosage: FREQUENCY : DAILY;?
     Route: 048
     Dates: start: 20250530, end: 20250610

REACTIONS (3)
  - Tremor [None]
  - Therapy cessation [None]
  - Seizure [None]

NARRATIVE: CASE EVENT DATE: 20250615
